FAERS Safety Report 8437378-8 (Version None)
Quarter: 2012Q2

REPORT INFORMATION
  Report Type: 
  Country: None (occurrence: None)
  Receive Date: 20120614
  Receipt Date: 20120315
  Transmission Date: 20120825
  Serious: No
  Sender: FDA-Public Use
  Company Number: US-AMGEN-USASP2011063428

PATIENT
  Age: 57 Year
  Sex: Female
  Weight: 112.47 kg

DRUGS (12)
  1. PROLIA [Suspect]
     Indication: OSTEOPOROSIS POSTMENOPAUSAL
     Dosage: 60 MG, Q6MO
     Route: 058
     Dates: start: 20111109, end: 20111130
  2. IRON [Concomitant]
     Dosage: UNK UNK, QD
  3. POTASSIUM ACETATE [Concomitant]
     Dosage: UNK UNK, QD
  4. CITALOPRAM [Concomitant]
     Dosage: 1 MG, QD
  5. LETROZOLE [Concomitant]
     Dosage: UNK UNK, QD
  6. BUPROPION HCL [Concomitant]
     Dosage: UNK UNK, QD
  7. VITAMIN K TAB [Concomitant]
     Dosage: UNK UNK, QD
  8. REPLENEX [Concomitant]
     Dosage: UNK UNK, QD
  9. VITAMIN B-12 [Concomitant]
     Dosage: UNK UNK, QD
  10. CALCIUM [Concomitant]
     Dosage: UNK UNK, QD
  11. TRAZODONE HCL [Concomitant]
     Dosage: UNK UNK, QD
  12. SIMVASTATIN [Concomitant]
     Dosage: UNK UNK, QD

REACTIONS (1)
  - BACK PAIN [None]
